FAERS Safety Report 9999717 (Version 2)
Quarter: 2015Q2

REPORT INFORMATION
  Report Type: Spontaneous
  Country: US (occurrence: US)
  Receive Date: 20140312
  Receipt Date: 20150623
  Transmission Date: 20150821
  Serious: Yes (Other)
  Sender: FDA-Public Use
  Company Number: US-ASTRAZENECA-2014SE15532

PATIENT
  Age: 60 Year
  Sex: Female

DRUGS (5)
  1. VALSARTAN. [Concomitant]
     Active Substance: VALSARTAN
     Dates: start: 2013
  2. CRESTOR [Suspect]
     Active Substance: ROSUVASTATIN CALCIUM
     Route: 048
  3. NITROFURANTN [Suspect]
     Active Substance: NITROFURANTOIN
     Dosage: 1 PILL
     Route: 065
  4. VITAMINS, SUPPLEMENT [Concomitant]
  5. DIOVAN HCT [Concomitant]
     Active Substance: HYDROCHLOROTHIAZIDE\VALSARTAN
     Dosage: 160/25 FOR PAST 6 OR SEVEN YEARS

REACTIONS (6)
  - Ill-defined disorder [Unknown]
  - Bone pain [Unknown]
  - Dyspnoea [Unknown]
  - Blindness transient [Recovered/Resolved]
  - Aphasia [Recovered/Resolved]
  - Lethargy [Unknown]
